FAERS Safety Report 5872338-2 (Version None)
Quarter: 2008Q3

REPORT INFORMATION
  Report Type: 
  Country: None (occurrence: None)
  Receive Date: 20080905
  Receipt Date: 20080901
  Transmission Date: 20090109
  Serious: Yes (Hospitalization)
  Sender: FDA-Public Use
  Company Number: AU-ASTRAZENECA-2008AP03517

PATIENT
  Sex: Female

DRUGS (4)
  1. MARCAINE [Suspect]
     Route: 037
     Dates: start: 20070816, end: 20070817
  2. ASPIRIN [Concomitant]
     Route: 048
  3. COVERSYL [Concomitant]
     Route: 048
  4. VYTORIN [Concomitant]
     Route: 048

REACTIONS (1)
  - RASH PRURITIC [None]
